FAERS Safety Report 4394376-1 (Version None)
Quarter: 2004Q3

REPORT INFORMATION
  Report Type: 
  Country: None (occurrence: None)
  Receive Date: 20040712
  Receipt Date: 20040701
  Transmission Date: 20050211
  Serious: Yes (Death)
  Sender: FDA-Public Use
  Company Number: 200415021US

PATIENT
  Sex: Male

DRUGS (2)
  1. TAXOTERE [Suspect]
     Indication: PROSTATE CANCER
     Dates: start: 20040101, end: 20040512
  2. EMCYT [Concomitant]
     Dosage: DOSE: UNK
     Dates: start: 20040101

REACTIONS (1)
  - ACUTE RESPIRATORY DISTRESS SYNDROME [None]
